FAERS Safety Report 24294374 (Version 3)
Quarter: 2025Q3

REPORT INFORMATION
  Report Type: Spontaneous
  Country: BR (occurrence: BR)
  Receive Date: 20240906
  Receipt Date: 20250803
  Transmission Date: 20251021
  Serious: Yes (Other)
  Sender: ALEXION PHARMACEUTICALS
  Company Number: 2024A200321

PATIENT
  Age: 63 Year
  Sex: Male

DRUGS (11)
  1. DAPAGLIFLOZIN [Suspect]
     Active Substance: DAPAGLIFLOZIN
     Indication: Anaemia
     Dosage: ONCE
     Dates: start: 20240806
  2. ROSUVASTATIN [Suspect]
     Active Substance: ROSUVASTATIN
  3. CARVEDILOL [Concomitant]
     Active Substance: CARVEDILOL
  4. CILOSTAZOL [Concomitant]
     Active Substance: CILOSTAZOL
  5. VIE [Concomitant]
  6. FERROUS BISGLYCINATE [Concomitant]
     Active Substance: FERROUS BISGLYCINATE
  7. SPIRONOLACTONE [Concomitant]
     Active Substance: SPIRONOLACTONE
  8. RINARIS [Concomitant]
  9. UNOPROST [Concomitant]
  10. XARELTO [Concomitant]
     Active Substance: RIVAROXABAN
  11. LOSARTAN [Concomitant]
     Active Substance: LOSARTAN

REACTIONS (6)
  - Infarction [Unknown]
  - Cardiac failure [Unknown]
  - Hypertension [Unknown]
  - Blood pressure decreased [Recovered/Resolved]
  - Anaemia [Unknown]
  - Off label use [Not Recovered/Not Resolved]

NARRATIVE: CASE EVENT DATE: 20240816
